FAERS Safety Report 6321858-5 (Version None)
Quarter: 2009Q3

REPORT INFORMATION
  Report Type: 
  Country: None (occurrence: None)
  Receive Date: 20090824
  Receipt Date: 20090610
  Transmission Date: 20100115
  Serious: No
  Sender: FDA-Public Use
  Company Number: US-BAYER-200923415NA

PATIENT
  Age: 25 Year
  Sex: Female

DRUGS (1)
  1. YAZ [Suspect]
     Indication: CYST
     Route: 048
     Dates: start: 20090604

REACTIONS (2)
  - MENORRHAGIA [None]
  - NO ADVERSE EVENT [None]
